FAERS Safety Report 8956737 (Version 1)
Quarter: 2012Q4

REPORT INFORMATION
  Report Type: 
  Country: US (occurrence: US)
  Receive Date: 20121210
  Receipt Date: 20121210
  Transmission Date: 20130627
  Serious: Yes (Other)
  Sender: FDA-Public Use
  Company Number: CHPA2012US024636

PATIENT
  Age: 80 Year
  Sex: Female

DRUGS (3)
  1. EXCEDRIN EXTRA STRENGTH [Suspect]
     Indication: BACK PAIN
     Dosage: 1/2 to 1 tablet daily
     Route: 048
  2. EXCEDRIN EXTRA STRENGTH [Suspect]
     Dosage: 1/2 to 1 tablet as needed
     Route: 048
  3. BABY ASPIRIN [Concomitant]
     Dosage: Unk, Unk

REACTIONS (5)
  - Rotator cuff syndrome [Unknown]
  - Spinal cord compression [Unknown]
  - Back injury [Unknown]
  - Off label use [Unknown]
  - Expired drug administered [Unknown]
